FAERS Safety Report 5030516-9 (Version None)
Quarter: 2006Q2

REPORT INFORMATION
  Report Type: 
  Country: None (occurrence: None)
  Receive Date: 20060615
  Receipt Date: 20060602
  Transmission Date: 20061013
  Serious: Yes (Hospitalization)
  Sender: FDA-Public Use
  Company Number: 2006PV014895

PATIENT
  Age: 53 Year
  Sex: Female
  Weight: 96.1626 kg

DRUGS (11)
  1. BYETTA [Suspect]
     Indication: DIABETES MELLITUS NON-INSULIN-DEPENDENT
     Dosage: 5 MCG;BID;SC
     Route: 058
     Dates: start: 20060507
  2. INSULIN [Concomitant]
  3. GLUCOPHAGE [Concomitant]
  4. NOVOLOG [Concomitant]
  5. CEFTIN [Concomitant]
  6. AVALIDE [Concomitant]
  7. CARDIZEM [Concomitant]
  8. LASIX [Concomitant]
  9. ACTOS [Concomitant]
  10. ADVAIR DISKUS 100/50 [Concomitant]
  11. XOPENEX [Concomitant]

REACTIONS (7)
  - ANOREXIA [None]
  - ASTHMA [None]
  - CONDITION AGGRAVATED [None]
  - HEADACHE [None]
  - SINUSITIS [None]
  - THERAPEUTIC RESPONSE UNEXPECTED [None]
  - WEIGHT DECREASED [None]
